FAERS Safety Report 16243464 (Version 5)
Quarter: 2021Q3

REPORT INFORMATION
  Report Type: Spontaneous
  Country: US (occurrence: US)
  Receive Date: 20190426
  Receipt Date: 20210827
  Transmission Date: 20211014
  Serious: Yes (Other)
  Sender: FDA-Public Use
  Company Number: US-SA-2019SA114020

PATIENT
  Age: 52 Year
  Sex: Male

DRUGS (4)
  1. ALPROLIX [Suspect]
     Active Substance: EFTRENONACOG ALFA
     Indication: PROPHYLAXIS
     Dosage: 4000 U
     Route: 042
  2. ALPROLIX [Suspect]
     Active Substance: EFTRENONACOG ALFA
     Indication: PROPHYLAXIS
     Dosage: 4000 U
     Route: 042
  3. ALPROLIX [Suspect]
     Active Substance: EFTRENONACOG ALFA
     Dosage: 6000 IU
     Route: 042
  4. ALPROLIX [Suspect]
     Active Substance: EFTRENONACOG ALFA
     Dosage: 6000 IU
     Route: 042

REACTIONS (4)
  - Haemorrhage [Recovered/Resolved]
  - Traumatic haemorrhage [Unknown]
  - Lymphadenectomy [Unknown]
  - Limb injury [Unknown]

NARRATIVE: CASE EVENT DATE: 20190410
